FAERS Safety Report 10512585 (Version 3)
Quarter: 2015Q1

REPORT INFORMATION
  Report Type: Report from Study
  Country: CH (occurrence: CH)
  Receive Date: 20141011
  Receipt Date: 20150326
  Transmission Date: 20150720
  Serious: Yes (Hospitalization)
  Sender: FDA-Public Use
  Company Number: CH-AMGEN-CHENI2014077353

PATIENT
  Age: 47 Year
  Sex: Female
  Weight: 89 kg

DRUGS (3)
  1. ARAVA [Concomitant]
     Active Substance: LEFLUNOMIDE
     Indication: PSORIASIS
     Dosage: 20 MG, UNK
  2. ETANERCEPT [Suspect]
     Active Substance: ETANERCEPT
     Indication: PSORIASIS
     Dosage: 50 MG, WEEKLY
     Route: 065
     Dates: start: 20131106, end: 20140808
  3. ETANERCEPT [Suspect]
     Active Substance: ETANERCEPT
     Dosage: UNK MG, UNK
     Route: 065

REACTIONS (3)
  - Diverticulitis [Recovered/Resolved]
  - Ovarian abscess [Recovered/Resolved]
  - Tubo-ovarian abscess [Recovered/Resolved]

NARRATIVE: CASE EVENT DATE: 20140808
